FAERS Safety Report 19766367 (Version 1)
Quarter: 2021Q3

REPORT INFORMATION
  Report Type: Spontaneous
  Country: US (occurrence: US)
  Receive Date: 20210830
  Receipt Date: 20210830
  Transmission Date: 20211014
  Serious: Yes (Other)
  Sender: FDA-Public Use
  Company Number: US-ELI_LILLY_AND_COMPANY-US202108009915

PATIENT
  Age: 75 Year
  Sex: Male

DRUGS (1)
  1. HUMALOG [Suspect]
     Active Substance: INSULIN LISPRO
     Indication: PRODUCT USED FOR UNKNOWN INDICATION
     Dosage: UNK UNK, UNKNOWN
     Route: 058
     Dates: start: 1996

REACTIONS (6)
  - Hypoacusis [Unknown]
  - Blood glucose increased [Unknown]
  - Drug ineffective [Unknown]
  - Macular degeneration [Unknown]
  - Visual impairment [Unknown]
  - Hypoglycaemic unconsciousness [Unknown]
